FAERS Safety Report 8970617 (Version 1)
Quarter: 2012Q4

REPORT INFORMATION
  Report Type: 
  Country: US (occurrence: US)
  Receive Date: 20121218
  Receipt Date: 20121218
  Transmission Date: 20130627
  Serious: No
  Sender: FDA-Public Use
  Company Number: US-BRISTOL-MYERS SQUIBB COMPANY-17069600

PATIENT
  Age: 32 Year
  Sex: Female
  Weight: 65.76 kg

DRUGS (5)
  1. ABILIFY [Suspect]
     Indication: BIPOLAR DISORDER
     Dosage: Rx: 163228206527
  2. ABILIFY [Suspect]
     Indication: PANIC DISORDER
     Dosage: Rx: 163228206527
  3. ABILIFY [Suspect]
     Indication: ANXIETY DISORDER
     Dosage: Rx: 163228206527
  4. ABILIFY [Suspect]
     Indication: POST-TRAUMATIC STRESS DISORDER
     Dosage: Rx: 163228206527
  5. LORAZEPAM [Suspect]

REACTIONS (3)
  - Restlessness [Unknown]
  - Sleep disorder [Unknown]
  - Feeling abnormal [Unknown]
